FAERS Safety Report 5374369-8 (Version None)
Quarter: 2007Q2

REPORT INFORMATION
  Report Type: 
  Country: None (occurrence: None)
  Receive Date: 20070629
  Receipt Date: 20070618
  Transmission Date: 20071010
  Serious: Yes (Death)
  Sender: FDA-Public Use
  Company Number: US-JNJFOC-20061203784

PATIENT
  Sex: Female
  Weight: 98.88 kg

DRUGS (7)
  1. REMICADE [Suspect]
     Route: 042
  2. REMICADE [Suspect]
     Route: 042
  3. REMICADE [Suspect]
     Route: 042
  4. REMICADE [Suspect]
     Indication: RHEUMATOID ARTHRITIS
     Route: 042
  5. ARAVA [Concomitant]
     Indication: RHEUMATOID ARTHRITIS
  6. PREDNISONE TAB [Concomitant]
     Indication: RHEUMATOID ARTHRITIS
     Dosage: PATIENT INCREASED DOSE FROM 5 MG ON HER OWN.
  7. NAPROXEN [Concomitant]

REACTIONS (4)
  - ABSCESS [None]
  - BACTERIAL SEPSIS [None]
  - DIVERTICULAR PERFORATION [None]
  - MULTI-ORGAN FAILURE [None]
